FAERS Safety Report 15332705 (Version 1)
Quarter: 2018Q3

REPORT INFORMATION
  Report Type: Spontaneous
  Country: ZA (occurrence: ZA)
  Receive Date: 20180830
  Receipt Date: 20180830
  Transmission Date: 20181010
  Serious: Yes (Other)
  Sender: FDA-Public Use
  Company Number: ZA-LUPIN PHARMACEUTICALS INC.-2017-02021

PATIENT
  Sex: Female

DRUGS (7)
  1. LOMANOR [Suspect]
     Active Substance: AMLODIPINE BESYLATE
     Indication: PRODUCT USED FOR UNKNOWN INDICATION
     Dosage: 5 MG, QD
     Route: 048
     Dates: start: 20161104
  2. ACCUMAX CO [Suspect]
     Active Substance: HYDROCHLOROTHIAZIDE\QUINAPRIL HYDROCHLORIDE
     Indication: DIURETIC THERAPY
     Dosage: 20/12.5 MG, QD
     Route: 048
     Dates: start: 20161104
  3. ECOTRIN [Concomitant]
     Active Substance: ASPIRIN
     Indication: PRODUCT USED FOR UNKNOWN INDICATION
     Dosage: 81 MG, UNK
     Route: 048
  4. ESTRO?PAUSE [Suspect]
     Active Substance: ESTRADIOL VALERATE
     Indication: HORMONE THERAPY
     Dosage: 1 MG, QD
     Route: 048
     Dates: start: 20161104
  5. BILOCOR [Suspect]
     Active Substance: BISOPROLOL FUMARATE
     Indication: HYPERTENSION
     Dosage: 5 MG, QD
     Route: 048
     Dates: start: 20161104
  6. AMLOC TABLETS [Suspect]
     Active Substance: AMLODIPINE BESYLATE
     Indication: HYPERTENSION
     Dosage: 5 MG, UNK
     Route: 048
  7. ESTRO?PAUSE [Suspect]
     Active Substance: ESTRADIOL VALERATE
     Indication: MENOPAUSE

REACTIONS (2)
  - Dizziness [Unknown]
  - Asthma [Not Recovered/Not Resolved]
